FAERS Safety Report 4470816-4 (Version None)
Quarter: 2004Q4

REPORT INFORMATION
  Report Type: 
  Country: None (occurrence: None)
  Receive Date: 20041006
  Receipt Date: 20040927
  Transmission Date: 20050328
  Serious: Yes (Hospitalization)
  Sender: FDA-Public Use
  Company Number: K200401311

PATIENT
  Age: 5 Year
  Sex: Female

DRUGS (2)
  1. SEPTRA [Suspect]
     Dosage: 20 ML, QD, ORAL
     Route: 048
     Dates: start: 20040315, end: 20040328
  2. METRONIDAZOLE (METRONIDAZOLE) 12 ML [Suspect]
     Dosage: 12ML, QD, ORAL
     Route: 048
     Dates: start: 20040308, end: 20040328

REACTIONS (5)
  - HAEMATOMA [None]
  - LIP HAEMORRHAGE [None]
  - MOUTH HAEMORRHAGE [None]
  - PETECHIAE [None]
  - THROMBOCYTOPENIA [None]
